FAERS Safety Report 9182182 (Version 1)
Quarter: 2012Q4

REPORT INFORMATION
  Report Type: 
  Country: SE (occurrence: SE)
  Receive Date: 20121030
  Receipt Date: 20121030
  Transmission Date: 20130627
  Serious: Yes (Other)
  Sender: FDA-Public Use
  Company Number: PHHY2012SE095967

PATIENT
  Sex: Female

DRUGS (2)
  1. CERTICAN [Suspect]
     Indication: LUNG TRANSPLANT
  2. CICLOSPORIN A [Concomitant]

REACTIONS (2)
  - Interstitial lung disease [Recovering/Resolving]
  - Forced expiratory volume decreased [Recovering/Resolving]
